FAERS Safety Report 5113233-6 (Version None)
Quarter: 2006Q3

REPORT INFORMATION
  Report Type: 
  Country: None (occurrence: None)
  Receive Date: 20060922
  Receipt Date: 20060914
  Transmission Date: 20061208
  Serious: Yes (Other)
  Sender: FDA-Public Use
  Company Number: FR-MERCK-0609USA04124

PATIENT
  Age: 72 Year
  Sex: Female

DRUGS (8)
  1. ZOCOR [Suspect]
     Route: 048
  2. ASPIRIN [Suspect]
     Route: 065
  3. ATACAND [Concomitant]
     Route: 065
  4. LASIX [Concomitant]
     Route: 065
  5. CARDENSIEL [Concomitant]
     Route: 065
  6. ZOLOFT [Concomitant]
     Route: 065
  7. ZOLPIDEM TARTRATE [Concomitant]
     Route: 065
  8. RIVOTRIL [Concomitant]
     Route: 065

REACTIONS (1)
  - COLITIS MICROSCOPIC [None]
